FAERS Safety Report 8581909-4 (Version None)
Quarter: 2012Q2

REPORT INFORMATION
  Report Type: 
  Country: None (occurrence: None)
  Receive Date: 20120423
  Receipt Date: 20100930
  Transmission Date: 20120825
  Serious: Yes (Other)
  Sender: FDA-Public Use
  Company Number: PHHY2010US48816

PATIENT
  Age: 82 Year
  Sex: Male
  Weight: 79.5 kg

DRUGS (8)
  1. VALTREX [Concomitant]
  2. RED BLOOD CELLS, CONCENTRATED (RED BLOOD CELLS, CONCENTRATED) [Concomitant]
  3. VIDAZA [Concomitant]
  4. METOPROLOL TARTRATE [Concomitant]
  5. EXJADE [Suspect]
     Indication: MYELODYSPLASTIC SYNDROME
     Dosage: 2000 MG, QD, ORAL
     Route: 048
     Dates: start: 20100524, end: 20100714
  6. EXJADE [Suspect]
     Indication: MYELODYSPLASTIC SYNDROME
     Dosage: 2000 MG, QD, ORAL
     Route: 048
     Dates: start: 20090612, end: 20100630
  7. LIPITOR [Concomitant]
  8. PLATELETS, HUMAN BLOOD (PLATELETS, HUMAN BLOOD) [Concomitant]

REACTIONS (3)
  - GASTROINTESTINAL HAEMORRHAGE [None]
  - HYPERSENSITIVITY [None]
  - RECTAL HAEMORRHAGE [None]
